FAERS Safety Report 21188523 (Version 1)
Quarter: 2022Q3

REPORT INFORMATION
  Report Type: Spontaneous
  Country: US (occurrence: US)
  Receive Date: 20220809
  Receipt Date: 20220809
  Transmission Date: 20221027
  Serious: No
  Sender: FDA-Public Use
  Company Number: US-IGSA-BIG0016956

PATIENT
  Age: 67 Year
  Sex: Female
  Weight: 53.515 kg

DRUGS (9)
  1. GAMUNEX-C [Suspect]
     Active Substance: HUMAN IMMUNOGLOBULIN G
     Indication: Chronic inflammatory demyelinating polyradiculoneuropathy
     Dosage: 2 MILLIGRAM/KILOGRAM, SINGLE
     Route: 042
     Dates: start: 20211020, end: 202110
  2. GAMUNEX-C [Suspect]
     Active Substance: HUMAN IMMUNOGLOBULIN G
     Dosage: 35 GRAM, SINGLE
     Route: 042
     Dates: start: 20211026, end: 20211026
  3. GAMUNEX-C [Suspect]
     Active Substance: HUMAN IMMUNOGLOBULIN G
     Dosage: 35 GRAM, SINGLE
     Route: 042
     Dates: start: 20211027, end: 20211027
  4. GAMUNEX-C [Suspect]
     Active Substance: HUMAN IMMUNOGLOBULIN G
     Dosage: 25 GRAM, SINGLE
     Route: 042
     Dates: start: 20211110, end: 20211110
  5. GAMUNEX-C [Suspect]
     Active Substance: HUMAN IMMUNOGLOBULIN G
     Dosage: 25 GRAM, SINGLE
     Route: 042
     Dates: start: 20211116, end: 20211116
  6. GAMUNEX-C [Suspect]
     Active Substance: HUMAN IMMUNOGLOBULIN G
     Dosage: 25 GRAM, SINGLE
     Route: 042
     Dates: start: 20211207, end: 20211207
  7. GAMUNEX-C [Suspect]
     Active Substance: HUMAN IMMUNOGLOBULIN G
     Dosage: 7.5 GRAM, SINGLE
     Route: 042
     Dates: start: 20211208, end: 20211208
  8. GAMUNEX-C [Suspect]
     Active Substance: HUMAN IMMUNOGLOBULIN G
     Dosage: 25 GRAM, SINGLE
     Route: 042
     Dates: start: 20211228, end: 20211228
  9. GAMUNEX-C [Suspect]
     Active Substance: HUMAN IMMUNOGLOBULIN G
     Dosage: 25 GRAM, SINGLE
     Route: 042
     Dates: start: 20211229, end: 20211229

REACTIONS (4)
  - Meningitis aseptic [Recovered/Resolved]
  - Phlebitis [Recovered/Resolved]
  - Inappropriate schedule of product administration [Unknown]
  - Drug ineffective [Unknown]

NARRATIVE: CASE EVENT DATE: 20211001
